FAERS Safety Report 5851018-3 (Version None)
Quarter: 2008Q3

REPORT INFORMATION
  Report Type: 
  Country: None (occurrence: None)
  Receive Date: 20080820
  Receipt Date: 20080603
  Transmission Date: 20090109
  Serious: No
  Sender: FDA-Public Use
  Company Number: US-BAYER-200823968NA

PATIENT
  Age: 43 Year
  Sex: Female
  Weight: 95 kg

DRUGS (4)
  1. MIRENA [Suspect]
     Indication: ADENOMYOSIS
     Route: 015
     Dates: start: 20080501, end: 20080519
  2. AYGESTIN [Concomitant]
     Indication: DRUG USE FOR UNKNOWN INDICATION
     Route: 048
  3. MOTRIN [Concomitant]
     Indication: PAIN
     Route: 048
  4. NORVASC [Concomitant]
     Indication: DRUG USE FOR UNKNOWN INDICATION
     Route: 048

REACTIONS (1)
  - INTRA-UTERINE CONTRACEPTIVE DEVICE EXPELLED [None]
